FAERS Safety Report 6804123-9 (Version None)
Quarter: 2010Q2

REPORT INFORMATION
  Report Type: 
  Country: None (occurrence: None)
  Receive Date: 20100628
  Receipt Date: 20070320
  Transmission Date: 20101027
  Serious: No
  Sender: FDA-Public Use
  Company Number: US-PFIZER INC-2006058093

PATIENT
  Sex: Female
  Weight: 63.5 kg

DRUGS (9)
  1. SUTENT [Suspect]
     Indication: RENAL CELL CARCINOMA
     Dates: start: 20060201, end: 20060425
  2. WARFARIN [Concomitant]
     Indication: THROMBOSIS
  3. WARFARIN [Concomitant]
     Indication: DEEP VEIN THROMBOSIS
  4. ZANTAC [Concomitant]
  5. ZOLOFT [Concomitant]
     Dosage: BEDTIME
  6. SYNTHROID [Concomitant]
  7. NEURONTIN [Concomitant]
  8. NEURONTIN [Concomitant]
     Dosage: BEDTIME
  9. DURAGESIC-100 [Concomitant]
     Dates: end: 20060329

REACTIONS (2)
  - MUSCLE SPASMS [None]
  - PAIN IN EXTREMITY [None]
